FAERS Safety Report 6021599-8 (Version None)
Quarter: 2008Q4

REPORT INFORMATION
  Report Type: 
  Country: None (occurrence: None)
  Receive Date: 20081222
  Receipt Date: 20081104
  Transmission Date: 20090506
  Serious: No
  Sender: FDA-Public Use
  Company Number: SPV1-2008-02406

PATIENT
  Age: 7 Year
  Sex: Male
  Weight: 20.9 kg

DRUGS (2)
  1. VYVANSE [Suspect]
     Indication: ASPERGER'S DISORDER
     Dosage: 30 MG, 1X/DAY;QD, ORAL
     Route: 048
     Dates: start: 20081028, end: 20081028
  2. VYVANSE [Suspect]
     Indication: ATTENTION DEFICIT/HYPERACTIVITY DISORDER
     Dosage: 30 MG, 1X/DAY;QD, ORAL
     Route: 048
     Dates: start: 20081028, end: 20081028

REACTIONS (2)
  - TARDIVE DYSKINESIA [None]
  - VOMITING [None]
